FAERS Safety Report 9335199 (Version 2)
Quarter: 2013Q2

REPORT INFORMATION
  Report Type: Spontaneous
  Country: JP (occurrence: JP)
  Receive Date: 20130606
  Receipt Date: 20130612
  Transmission Date: 20140414
  Serious: Yes (Other)
  Sender: FDA-Public Use
  Company Number: JP-GLAXOSMITHKLINE-B0896571A

PATIENT
  Age: 8 Decade
  Sex: Female

DRUGS (4)
  1. LAMICTAL [Suspect]
     Indication: BIPOLAR DISORDER
     Dosage: 12.5MG PER DAY
     Route: 048
     Dates: start: 201205
  2. AKINETON [Concomitant]
     Route: 065
  3. TASMOLIN [Concomitant]
     Route: 065
  4. DONEPEZIL HYDROCHLORIDE [Concomitant]
     Route: 048

REACTIONS (3)
  - Convulsion [Recovered/Resolved]
  - Musculoskeletal stiffness [Not Recovered/Not Resolved]
  - Toe walking [Not Recovered/Not Resolved]
